FAERS Safety Report 8509072-6 (Version None)
Quarter: 2012Q3

REPORT INFORMATION
  Report Type: 
  Country: None (occurrence: None)
  Receive Date: 20120713
  Receipt Date: 20120706
  Transmission Date: 20120928
  Serious: Yes (Hospitalization)
  Sender: FDA-Public Use
  Company Number: JP-B.I. PHARMACEUTICALS,INC./RIDGEFIELD-2012-EU-03088GD

PATIENT
  Sex: Male
  Weight: 64 kg

DRUGS (8)
  1. MUCOSTA [Concomitant]
     Indication: GASTRITIS PROPHYLAXIS
     Dosage: 200 MG
     Route: 048
     Dates: end: 20110511
  2. WARFARIN SODIUM [Concomitant]
     Indication: THROMBOSIS PROPHYLAXIS
     Dosage: 2.5 MG
     Route: 048
     Dates: end: 20110503
  3. PRADAXA [Suspect]
     Indication: THROMBOSIS PROPHYLAXIS
     Dosage: 300 MG
     Route: 048
     Dates: start: 20110510, end: 20110514
  4. LOW-MOLECULAR DEXTRAN L [Concomitant]
     Indication: CIRCULATORY COLLAPSE
     Dosage: 500 ML
     Route: 042
     Dates: start: 20110428, end: 20110502
  5. ASPIRIN [Concomitant]
     Indication: THROMBOSIS PROPHYLAXIS
     Dosage: 200 MG
     Route: 048
  6. RADICUT [Concomitant]
     Indication: PROPHYLAXIS
     Dosage: 60 MG
     Route: 042
     Dates: start: 20110428, end: 20110507
  7. WARFARIN SODIUM [Concomitant]
     Dosage: 3.5 MG
     Route: 048
     Dates: start: 20110504, end: 20110509
  8. OMEPRAZOLE [Concomitant]
     Indication: PROPHYLAXIS AGAINST GASTROINTESTINAL ULCER
     Dosage: 10 MG
     Route: 048
     Dates: start: 20110509, end: 20110530

REACTIONS (3)
  - GINGIVAL SWELLING [None]
  - GINGIVAL BLEEDING [None]
  - STOMATITIS [None]
